FAERS Safety Report 25216718 (Version 5)
Quarter: 2025Q3

REPORT INFORMATION
  Report Type: Spontaneous
  Country: US (occurrence: US)
  Receive Date: 20250419
  Receipt Date: 20250718
  Transmission Date: 20251021
  Serious: No
  Sender: APOTEX
  Company Number: US-APOTEX-2025AP004309

PATIENT
  Sex: Male

DRUGS (3)
  1. OFLOXACIN OTIC [Suspect]
     Active Substance: OFLOXACIN
     Indication: Product used for unknown indication
     Dosage: 5 DROPS IN EACH EAR IN THE MORNING AND 10 DROPS IN EACH EAR AT NIGHT
     Route: 001
     Dates: start: 20250327, end: 20250328
  2. OFLOXACIN OTIC [Suspect]
     Active Substance: OFLOXACIN
     Dosage: 10 GTT DROPS, BID
     Route: 001
     Dates: start: 20250328, end: 20250330
  3. OFLOXACIN OTIC [Suspect]
     Active Substance: OFLOXACIN
     Dosage: 20 GTT DROPS, QD
     Route: 001

REACTIONS (3)
  - Product dose omission issue [Unknown]
  - Product packaging quantity issue [Unknown]
  - Product use issue [Unknown]

NARRATIVE: CASE EVENT DATE: 20250331
